FAERS Safety Report 13888027 (Version 1)
Quarter: 2017Q3

REPORT INFORMATION
  Report Type: Spontaneous
  Country: FR (occurrence: FR)
  Receive Date: 20170822
  Receipt Date: 20170822
  Transmission Date: 20171127
  Serious: Yes (Hospitalization)
  Sender: FDA-Public Use
  Company Number: FR-ACCORD-057470

PATIENT
  Age: 62 Year
  Sex: Female

DRUGS (18)
  1. SERESTA [Suspect]
     Active Substance: OXAZEPAM
     Indication: ANXIETY
     Dosage: STRENGTH: 50 MG, 2 DF AT BEDTIME
     Route: 048
     Dates: end: 20170725
  2. PARACETAMOL [Concomitant]
     Active Substance: ACETAMINOPHEN
     Dosage: 2 DF FOURTH TIME DAILY IF NEEDED
  3. PARKINANE LP [Suspect]
     Active Substance: TRIHEXYPHENIDYL HYDROCHLORIDE
     Indication: PARKINSONISM
     Dosage: STRENGTH: 5 MG, 2 DF IN THE MORNING
     Route: 048
  4. MOVICOL [Concomitant]
     Active Substance: POLYETHYLENE GLYCOL 3350\POTASSIUM CHLORIDE\SODIUM BICARBONATE\SODIUM CHLORIDE
  5. SMECTA [Concomitant]
     Active Substance: MONTMORILLONITE
     Dosage: IF NEEDED
  6. CARBOPLATIN HOSPIRA [Suspect]
     Active Substance: CARBOPLATIN
     Indication: LUNG NEOPLASM MALIGNANT
     Dosage: STRENGTH: 10 MG/ML
     Route: 042
     Dates: start: 20170713
  7. LOXAPAC [Suspect]
     Active Substance: LOXAPINE SUCCINATE
     Indication: BIPOLAR DISORDER
     Route: 048
  8. PANTOPRAZOLE [Concomitant]
     Active Substance: PANTOPRAZOLE
  9. RAMIPRIL. [Concomitant]
     Active Substance: RAMIPRIL
     Dosage: STRENGTH: 2.5 MG
  10. TRAMADOL. [Concomitant]
     Active Substance: TRAMADOL
     Dosage: STRENGTH: 100 MG, 2 DF DAILY IF NEEDED
  11. HYDROXYZINE [Concomitant]
     Active Substance: HYDROXYZINE HYDROCHLORIDE
     Dosage: STRENGTH: 25 MG, IF NEEDED
  12. SETOFILM [Concomitant]
     Active Substance: ONDANSETRON
     Dosage: STRENGTH: 8 MG, AFTER EACH CHEMOTHERAPY
  13. NAVELBINE [Suspect]
     Active Substance: VINORELBINE TARTRATE
     Indication: LUNG NEOPLASM MALIGNANT
     Route: 048
     Dates: start: 20170511, end: 20170713
  14. ARIPIPRAZOLE SANDOZ [Suspect]
     Active Substance: ARIPIPRAZOLE
     Indication: BIPOLAR DISORDER
     Dosage: STRENGTH : 15 MG
     Route: 048
  15. TERALITHE [Suspect]
     Active Substance: LITHIUM CARBONATE
     Indication: BIPOLAR DISORDER
     Dosage: STRENGTH: 250 MG
     Route: 048
     Dates: end: 20170725
  16. FLUCONAZOLE ARROW [Suspect]
     Active Substance: FLUCONAZOLE
     Indication: PROPHYLAXIS
     Dosage: ONE MEASURING SPOON IN THE MORNING
     Route: 048
  17. CISPLATIN ACCORD [Suspect]
     Active Substance: CISPLATIN
     Indication: LUNG NEOPLASM MALIGNANT
     Route: 042
     Dates: start: 20170512, end: 20170623
  18. SODIUM BICARBONATE. [Concomitant]
     Active Substance: SODIUM BICARBONATE

REACTIONS (2)
  - Encephalopathy [Recovered/Resolved]
  - Acute kidney injury [Unknown]

NARRATIVE: CASE EVENT DATE: 20170716
